FAERS Safety Report 15651011 (Version 4)
Quarter: 2025Q2

REPORT INFORMATION
  Report Type: Spontaneous
  Country: US (occurrence: US)
  Receive Date: 20181123
  Receipt Date: 20250428
  Transmission Date: 20250717
  Serious: Yes (Hospitalization, Other)
  Sender: AUROBINDO
  Company Number: US-AUROBINDO-AUR-APL-2018-055668

PATIENT
  Age: 19 Year
  Sex: Female
  Weight: 69 kg

DRUGS (1)
  1. ACETAMINOPHEN\DIPHENHYDRAMINE [Suspect]
     Active Substance: ACETAMINOPHEN\DIPHENHYDRAMINE
     Indication: Product used for unknown indication
     Route: 048

REACTIONS (7)
  - Hepatotoxicity [Recovering/Resolving]
  - Haemolysis [Recovered/Resolved]
  - Overdose [Recovering/Resolving]
  - Anaemia [Recovered/Resolved]
  - Vomiting [Recovered/Resolved]
  - Haemoglobin decreased [Recovered/Resolved]
  - Prothrombin time prolonged [Recovered/Resolved]
